FAERS Safety Report 5424376-1 (Version None)
Quarter: 2007Q3

REPORT INFORMATION
  Report Type: 
  Country: None (occurrence: None)
  Receive Date: 20070731
  Receipt Date: 20070403
  Transmission Date: 20080115
  Serious: No
  Sender: FDA-Public Use
  Company Number: US200704000907

PATIENT
  Age: 58 Year
  Sex: Female
  Weight: 99.8 kg

DRUGS (4)
  1. BYETTA [Suspect]
     Indication: TYPE 2 DIABETES MELLITUS
     Dosage: 5 UG, 2/D, SUBCUTANEOUS
     Route: 058
     Dates: start: 20060901
  2. LABETALOL HCL [Concomitant]
  3. SULAR [Concomitant]
  4. METFORMIN HCL [Concomitant]

REACTIONS (3)
  - ALOPECIA [None]
  - PROTEIN URINE PRESENT [None]
  - WEIGHT DECREASED [None]
